FAERS Safety Report 8415125-3 (Version None)
Quarter: 2012Q2

REPORT INFORMATION
  Report Type: 
  Country: None (occurrence: None)
  Receive Date: 20120606
  Receipt Date: 20120601
  Transmission Date: 20120825
  Serious: Yes (Other)
  Sender: FDA-Public Use
  Company Number: US-PFIZER INC-2012054175

PATIENT
  Sex: Female

DRUGS (2)
  1. CHANTIX [Suspect]
     Dosage: STARTING MONTH
     Dates: start: 20081006, end: 20090408
  2. CHANTIX [Suspect]
     Indication: SMOKING CESSATION THERAPY
     Dosage: 1 MG,
     Dates: start: 20080604, end: 20080701

REACTIONS (3)
  - ANXIETY [None]
  - HALLUCINATION [None]
  - DEPRESSION [None]
